FAERS Safety Report 4516564-3 (Version None)
Quarter: 2004Q4

REPORT INFORMATION
  Report Type: 
  Country: None (occurrence: None)
  Receive Date: 20041202
  Receipt Date: 20041122
  Transmission Date: 20050328
  Serious: Yes (Hospitalization)
  Sender: FDA-Public Use
  Company Number: US-ROCHE-386801

PATIENT
  Age: 51 Year
  Sex: Female
  Weight: 85 kg

DRUGS (3)
  1. PEG-INTERFERON ALFA 2A (RO 25-8310) [Suspect]
     Dosage: FREQUENCY REPORTED AS WEEKLY.
     Route: 058
  2. RIBAVIRIN [Suspect]
     Route: 048
  3. TIGAN [Concomitant]
     Dates: start: 20040720

REACTIONS (5)
  - DEHYDRATION [None]
  - DISORIENTATION [None]
  - DIZZINESS [None]
  - DYSARTHRIA [None]
  - THERAPY NON-RESPONDER [None]
